FAERS Safety Report 14404097 (Version 4)
Quarter: 2020Q2

REPORT INFORMATION
  Report Type: Report from Study
  Country: None (occurrence: US)
  Receive Date: 20180117
  Receipt Date: 20200522
  Transmission Date: 20200713
  Serious: Yes (Death, Hospitalization)
  Sender: FDA-Public Use
  Company Number: US-ABBVIE-18P-163-2224916-00

PATIENT
  Age: 79 Year
  Sex: Male

DRUGS (2)
  1. VENCLEXTA [Suspect]
     Active Substance: VENETOCLAX
     Route: 048
     Dates: start: 20171025, end: 201911
  2. VENCLEXTA [Suspect]
     Active Substance: VENETOCLAX
     Indication: MANTLE CELL LYMPHOMA
     Route: 048

REACTIONS (6)
  - Blood potassium increased [Fatal]
  - Blood glucose decreased [Fatal]
  - Renal failure [Fatal]
  - Post procedural infection [Recovered/Resolved]
  - Urinary tract infection [Fatal]
  - Off label use [Unknown]

NARRATIVE: CASE EVENT DATE: 20171226
